FAERS Safety Report 9059422 (Version 6)
Quarter: 2013Q2

REPORT INFORMATION
  Report Type: Spontaneous
  Country: FR (occurrence: FR)
  Receive Date: 20130211
  Receipt Date: 20130517
  Transmission Date: 20140414
  Serious: Yes (Hospitalization)
  Sender: FDA-Public Use
  Company Number: FR-VERTEX PHARMACEUTICALS INC.-2013-001222

PATIENT
  Age: 12 Year
  Sex: Female

DRUGS (22)
  1. KALYDECO [Suspect]
     Indication: CYSTIC FIBROSIS
     Dosage: 150 MG, BID
     Route: 048
     Dates: start: 201205, end: 20130128
  2. ZITHROMAX [Suspect]
     Indication: RESPIRATORY TRACT INFLAMMATION
     Dosage: 250 MG, 3 TIMES A WEEK
     Route: 048
     Dates: start: 20110128, end: 20130122
  3. SOLUPRED [Suspect]
     Indication: RESPIRATORY DISORDER
     Dosage: 20 MG, QD
     Route: 048
     Dates: start: 201211
  4. SOLUPRED [Suspect]
     Dosage: 40 MG, QD
     Route: 048
     Dates: start: 20130118, end: 20130122
  5. CREON [Concomitant]
  6. PREDNISONE [Concomitant]
  7. VITAMINS [Concomitant]
  8. OMEPRAZOLE [Concomitant]
  9. SPASFON [Concomitant]
  10. DOLIPRANE [Concomitant]
  11. PANCREATIN [Concomitant]
  12. ASCORBIC ACID [Concomitant]
  13. ERGOCALCIFEROL [Concomitant]
  14. NICOTINAMIDE [Concomitant]
  15. RETINOL [Concomitant]
  16. RIBOFLAVIN [Concomitant]
  17. THIAMINE HYDROCHLORIDE [Concomitant]
  18. PHLOROGLUCINOL [Concomitant]
  19. TRIMETHYLPHLOROGLUCINOL [Concomitant]
  20. PULMOZYME [Concomitant]
  21. COLIMYCINE [Concomitant]
  22. DORNASE ALFA [Concomitant]

REACTIONS (1)
  - Transaminases increased [Recovered/Resolved]
